FAERS Safety Report 6211331-7 (Version None)
Quarter: 2009Q2

REPORT INFORMATION
  Report Type: 
  Country: None (occurrence: None)
  Receive Date: 20090522
  Receipt Date: 20090122
  Transmission Date: 20091009
  Serious: No
  Sender: FDA-Public Use
  Company Number: 8041629

PATIENT
  Age: 26 Year
  Sex: Female
  Weight: 55.9 kg

DRUGS (5)
  1. CIMZIA [Suspect]
     Indication: CROHN'S DISEASE
     Dosage: 400 MG SC
     Route: 058
     Dates: start: 20081201
  2. LOESTRIN BIRTH CONTROL PILL [Concomitant]
  3. PERCOCET [Concomitant]
  4. XANAX [Concomitant]
  5. LOMOTIL [Concomitant]

REACTIONS (3)
  - DIZZINESS [None]
  - DRUG INEFFECTIVE [None]
  - UPPER RESPIRATORY TRACT INFECTION [None]
